APPROVED DRUG PRODUCT: OLANZAPINE
Active Ingredient: OLANZAPINE
Strength: 15MG
Dosage Form/Route: TABLET;ORAL
Application: A204866 | Product #005
Applicant: HIKMA PHARMACEUTICALS LLC
Approved: Jun 16, 2017 | RLD: No | RS: No | Type: DISCN